FAERS Safety Report 25774817 (Version 1)
Quarter: 2025Q3

REPORT INFORMATION
  Report Type: Other
  Country: EU (occurrence: EU)
  Receive Date: 20250908
  Receipt Date: 20250908
  Transmission Date: 20251020
  Serious: Yes (Hospitalization, Other)
  Sender: KNIGHT THERAPEUTICS
  Company Number: EU-Knight Therapeutics (USA) Inc.-2184084

PATIENT
  Age: 68 Year
  Sex: Male

DRUGS (2)
  1. IMPAVIDO [Suspect]
     Active Substance: MILTEFOSINE
     Indication: Leishmaniasis
     Dates: start: 20250501, end: 20250529
  2. IBUPROFEN [Suspect]
     Active Substance: IBUPROFEN
     Dates: start: 20250501

REACTIONS (2)
  - Acute kidney injury [Recovered/Resolved]
  - Gout [Recovered/Resolved]

NARRATIVE: CASE EVENT DATE: 20250515
